FAERS Safety Report 16662119 (Version 1)
Quarter: 2019Q3

REPORT INFORMATION
  Report Type: Spontaneous
  Country: US (occurrence: US)
  Receive Date: 20190731
  Receipt Date: 20190731
  Transmission Date: 20191004
  Serious: Yes (Other)
  Sender: FDA-Public Use
  Company Number: None

PATIENT

DRUGS (2)
  1. LINUM/LINSEED OIL [Suspect]
     Active Substance: HERBALS\LINSEED OIL
  2. CBD OIL [Suspect]
     Active Substance: CANNABIDIOL\HERBALS

REACTIONS (6)
  - Migraine [None]
  - Somnolence [None]
  - Confusional state [None]
  - Product formulation issue [None]
  - Dermatitis contact [None]
  - Blood pressure fluctuation [None]
